FAERS Safety Report 8792045 (Version 1)
Quarter: 2012Q4

REPORT INFORMATION
  Report Type: 
  Country: TW (occurrence: TW)
  Receive Date: 20120918
  Receipt Date: 20120918
  Transmission Date: 20130627
  Serious: Yes (Hospitalization, Other)
  Sender: FDA-Public Use
  Company Number: TW-JNJFOC-20120905174

PATIENT
  Age: 79 Year
  Sex: Male
  Weight: 65 kg

DRUGS (2)
  1. HALDOL [Suspect]
     Indication: AGITATION
     Dosage: (5 mg/amp) 0.5 amp stat.
     Route: 065
  2. UNASYN [Concomitant]
     Indication: PRODUCT USED FOR UNKNOWN INDICATION
     Route: 065

REACTIONS (1)
  - Altered state of consciousness [Recovered/Resolved]
